FAERS Safety Report 4944876-8 (Version None)
Quarter: 2006Q1

REPORT INFORMATION
  Report Type: 
  Country: None (occurrence: None)
  Receive Date: 20060315
  Receipt Date: 20051013
  Transmission Date: 20060701
  Serious: Yes (Hospitalization, Disabling)
  Sender: FDA-Public Use
  Company Number: PR-MERCK-0510USA07431

PATIENT
  Age: 41 Year
  Sex: Male
  Weight: 80 kg

DRUGS (6)
  1. VIOXX [Suspect]
     Route: 048
     Dates: start: 19990101, end: 20040101
  2. CELEBREX [Concomitant]
     Route: 065
  3. BEXTRA [Concomitant]
     Route: 065
  4. [THERAPY UNSPECIFIED] [Concomitant]
     Indication: ANALGESIC EFFECT
     Route: 065
     Dates: start: 19980117, end: 20020115
  5. [THERAPY UNSPECIFIED] [Concomitant]
     Indication: TENSION HEADACHE
     Route: 065
     Dates: start: 19980117, end: 20020115
  6. AMBIEN [Concomitant]
     Route: 065

REACTIONS (14)
  - ANGINA PECTORIS [None]
  - BLOOD CHOLESTEROL INCREASED [None]
  - CARDIAC DISORDER [None]
  - CARDIOMYOPATHY [None]
  - CHEST PAIN [None]
  - DEPRESSION [None]
  - FIBROMYALGIA [None]
  - GASTROOESOPHAGEAL REFLUX DISEASE [None]
  - HYPERTENSION [None]
  - MUSCULOSKELETAL CHEST PAIN [None]
  - MYOCARDIAL INFARCTION [None]
  - OSTEOARTHRITIS [None]
  - PANIC DISORDER [None]
  - SLEEP APNOEA SYNDROME [None]
